FAERS Safety Report 7364674-8 (Version None)
Quarter: 2011Q1

REPORT INFORMATION
  Report Type: 
  Country: None (occurrence: None)
  Receive Date: 20110315
  Receipt Date: 20110315
  Transmission Date: 20110831
  Serious: Yes (Life-Threatening)
  Sender: FDA-Public Use
  Company Number: None

PATIENT
  Age: 68 Year
  Sex: Male
  Weight: 72.5755 kg

DRUGS (1)
  1. SIMVASTATIN [Suspect]
     Indication: BLOOD CHOLESTEROL
     Dosage: 80MG 1 @HS PO
     Route: 048
     Dates: start: 20090101, end: 20110225

REACTIONS (6)
  - FATIGUE [None]
  - BACK PAIN [None]
  - ARTHRALGIA [None]
  - DIARRHOEA [None]
  - HEPATIC CIRRHOSIS [None]
  - MUSCULAR WEAKNESS [None]
